FAERS Safety Report 9785967 (Version 1)
Quarter: 2013Q4

REPORT INFORMATION
  Report Type: Report from Study
  Country: DZ (occurrence: DZ)
  Receive Date: 20131227
  Receipt Date: 20131227
  Transmission Date: 20140711
  Serious: Yes (Death)
  Sender: FDA-Public Use
  Company Number: DZ-SA-2013SA134880

PATIENT
  Sex: Female
  Weight: 56 kg

DRUGS (6)
  1. DOCETAXEL [Suspect]
     Indication: BREAST CANCER
     Route: 042
     Dates: start: 20090217, end: 20090217
  2. ONDANSETRON [Concomitant]
     Indication: ANTIEMETIC SUPPORTIVE CARE
     Route: 042
     Dates: start: 20090217, end: 20090217
  3. RANITIDINE [Concomitant]
     Indication: UNEVALUABLE EVENT
     Route: 042
     Dates: start: 20090217, end: 20090217
  4. RANITIDINE [Concomitant]
     Indication: GASTRIC ULCER
     Route: 042
     Dates: start: 20090217, end: 20090217
  5. METHYLPREDNISOLONE [Concomitant]
     Indication: ANTIEMETIC SUPPORTIVE CARE
     Route: 042
     Dates: start: 20090217, end: 20090217
  6. CORTICOSTEROID NOS [Concomitant]
     Indication: ANTIEMETIC SUPPORTIVE CARE
     Route: 048
     Dates: start: 20090216, end: 20090218

REACTIONS (3)
  - Diabetic coma [Fatal]
  - Nausea [Recovered/Resolved]
  - Diarrhoea [Recovered/Resolved]
